FAERS Safety Report 24114299 (Version 2)
Quarter: 2024Q3

REPORT INFORMATION
  Report Type: Report from Study
  Country: US (occurrence: US)
  Receive Date: 20240720
  Receipt Date: 20240802
  Transmission Date: 20241017
  Serious: Yes (Other)
  Sender: ABBVIE
  Company Number: US-ABBVIE-5843112

PATIENT
  Sex: Male

DRUGS (1)
  1. HUMIRA [Suspect]
     Active Substance: ADALIMUMAB
     Indication: Rheumatoid arthritis
     Route: 058
     Dates: start: 20160527

REACTIONS (5)
  - Spondylolisthesis [Unknown]
  - Pain in extremity [Unknown]
  - Arthralgia [Unknown]
  - Sciatica [Unknown]
  - Back pain [Not Recovered/Not Resolved]
